FAERS Safety Report 20763231 (Version 3)
Quarter: 2023Q2

REPORT INFORMATION
  Report Type: Report from Study
  Country: KR (occurrence: KR)
  Receive Date: 20220428
  Receipt Date: 20230419
  Transmission Date: 20230721
  Serious: Yes (Hospitalization, Other)
  Sender: FDA-Public Use
  Company Number: KR-TAKEDA-2022TUS026957

PATIENT
  Age: 82 Year
  Sex: Male
  Weight: 76.5 kg

DRUGS (17)
  1. IXAZOMIB [Suspect]
     Active Substance: IXAZOMIB
     Indication: Plasma cell myeloma
     Dosage: 3 MILLIGRAM
     Route: 048
     Dates: start: 20220127, end: 20220310
  2. IXAZOMIB [Suspect]
     Active Substance: IXAZOMIB
     Dosage: 2.3 MILLIGRAM
     Route: 048
     Dates: start: 20220428
  3. DEXAMETHASONE [Concomitant]
     Active Substance: DEXAMETHASONE
     Indication: Plasma cell myeloma
     Dosage: 20 MILLIGRAM, QD
     Route: 048
     Dates: start: 20220127
  4. DEXAMETHASONE [Concomitant]
     Active Substance: DEXAMETHASONE
     Dosage: 10 MILLIGRAM, QD
     Route: 048
     Dates: start: 20220203
  5. LENALIDOMIDE [Concomitant]
     Active Substance: LENALIDOMIDE
     Indication: Plasma cell myeloma
     Dosage: Q15 MILLIGRAM, QD
     Route: 048
     Dates: start: 20220127
  6. LINAGLIPTIN\METFORMIN HYDROCHLORIDE [Concomitant]
     Active Substance: LINAGLIPTIN\METFORMIN HYDROCHLORIDE
     Indication: Diabetes mellitus
     Dosage: UNK
     Route: 048
  7. VASTAN [Concomitant]
     Indication: Angina pectoris
     Dosage: 35 MILLIGRAM
     Route: 048
  8. ASPIRIN [Concomitant]
     Active Substance: ASPIRIN
     Indication: Angina pectoris
     Dosage: 100 MILLIGRAM
     Route: 048
  9. PREDNISOLONE [Concomitant]
     Active Substance: PREDNISOLONE
     Indication: Adrenal insufficiency
     Dosage: 5 MILLIGRAM
     Route: 048
  10. BURCO [Concomitant]
     Indication: Blood uric acid increased
     Dosage: 40 MILLIGRAM
     Route: 048
  11. NEXIUM [Concomitant]
     Active Substance: ESOMEPRAZOLE MAGNESIUM
     Indication: Gastrointestinal disorder
     Dosage: 20 MILLIGRAM
     Route: 048
     Dates: start: 20220224, end: 20220317
  12. TYLENOL 8HR [Concomitant]
     Active Substance: ACETAMINOPHEN
     Indication: Myalgia
     Dosage: 1300 MILLIGRAM
     Route: 048
     Dates: end: 20220514
  13. NEUTOIN [Concomitant]
     Indication: Dementia
     Dosage: 5 MILLIGRAM
     Route: 048
  14. FOTAGEL [Concomitant]
     Indication: Diarrhoea
     Dosage: 20 MILLILITER
     Route: 048
     Dates: start: 20220224, end: 20220405
  15. CHOLINE ALFOSCERATE [Concomitant]
     Active Substance: CHOLINE ALFOSCERATE
     Indication: Dementia
     Dosage: 400 MILLIGRAM
     Route: 048
     Dates: end: 20220411
  16. Cavid [Concomitant]
     Indication: Osteopenia
     Dosage: UNK
     Route: 048
  17. CICOR SOFT CAP [Concomitant]
     Indication: Arteriosclerosis
     Dosage: 1 GRAM, QD
     Route: 048

REACTIONS (1)
  - Septic shock [Recovered/Resolved]

NARRATIVE: CASE EVENT DATE: 20220326
